FAERS Safety Report 19587911 (Version 1)
Quarter: 2021Q3

REPORT INFORMATION
  Report Type: Spontaneous
  Country: GB (occurrence: GB)
  Receive Date: 20210721
  Receipt Date: 20210721
  Transmission Date: 20211014
  Serious: Yes (Other)
  Sender: FDA-Public Use
  Company Number: GB-AUROBINDO-AUR-APL-2021-031424

PATIENT
  Age: 40 Year
  Sex: Female
  Weight: 60.32 kg

DRUGS (2)
  1. CLOTRIMAZOLE. [Suspect]
     Active Substance: CLOTRIMAZOLE
     Indication: ILL-DEFINED DISORDER
     Dosage: UNK (1 TABLET)
     Route: 048
     Dates: start: 20170406
  2. FLUCONAZOLE. [Suspect]
     Active Substance: FLUCONAZOLE
     Indication: ILL-DEFINED DISORDER
     Dosage: UNK (1)
     Route: 048
     Dates: start: 20180904

REACTIONS (1)
  - Adverse drug reaction [Recovered/Resolved]
